FAERS Safety Report 6864620-7 (Version None)
Quarter: 2010Q3

REPORT INFORMATION
  Report Type: 
  Country: None (occurrence: None)
  Receive Date: 20100721
  Receipt Date: 20100714
  Transmission Date: 20110219
  Serious: Yes (Death)
  Sender: FDA-Public Use
  Company Number: SA-GENENTECH-304299

PATIENT

DRUGS (2)
  1. ACTIVASE [Suspect]
     Indication: INTRACARDIAC THROMBUS
     Route: 042
  2. ACTIVASE [Suspect]
     Indication: THROMBOSIS

REACTIONS (1)
  - HAEMORRHAGE [None]
